FAERS Safety Report 5049936-1 (Version None)
Quarter: 2006Q3

REPORT INFORMATION
  Report Type: 
  Country: None (occurrence: None)
  Receive Date: 20060707
  Receipt Date: 20060623
  Transmission Date: 20061208
  Serious: Yes (Other)
  Sender: FDA-Public Use
  Company Number: 200612670BCC

PATIENT
  Age: 73 Year
  Sex: Female
  Weight: 70.7611 kg

DRUGS (4)
  1. ALEVE [Suspect]
     Indication: ARTHRALGIA
     Dosage: 440 MG, TOTAL DAILY, ORAL
     Route: 048
     Dates: end: 20060622
  2. PROZAC [Suspect]
  3. PREMPRO [Suspect]
     Indication: HORMONE THERAPY
  4. ZESTRIL [Concomitant]

REACTIONS (1)
  - VAGINAL HAEMORRHAGE [None]
